FAERS Safety Report 7420109-8 (Version None)
Quarter: 2011Q2

REPORT INFORMATION
  Report Type: 
  Country: None (occurrence: None)
  Receive Date: 20110413
  Receipt Date: 20110413
  Transmission Date: 20111010
  Serious: Yes (Life-Threatening, Hospitalization, Disabling)
  Sender: FDA-Public Use
  Company Number: None

PATIENT
  Age: 51 Year
  Sex: Female
  Weight: 49.8957 kg

DRUGS (2)
  1. LEVAQUIN [Suspect]
     Indication: URINARY TRACT INFECTION
     Dates: start: 20100803
  2. LEVAQUIN [Suspect]
     Indication: BRONCHITIS
     Dates: start: 20100803

REACTIONS (10)
  - INSOMNIA [None]
  - ABDOMINAL PAIN [None]
  - ANXIETY [None]
  - PALPITATIONS [None]
  - LOSS OF CONSCIOUSNESS [None]
  - MUSCULAR WEAKNESS [None]
  - SENSORY DISTURBANCE [None]
  - PARAESTHESIA [None]
  - HYPOAESTHESIA [None]
  - FATIGUE [None]
